FAERS Safety Report 9302104 (Version 2)
Quarter: 2013Q4

REPORT INFORMATION
  Report Type: Spontaneous
  Country: US (occurrence: US)
  Receive Date: 20130521
  Receipt Date: 20131126
  Transmission Date: 20140711
  Serious: Yes (Hospitalization)
  Sender: FDA-Public Use
  Company Number: US-B.I. PHARMACEUTICALS,INC./RIDGEFIELD-2013-BI-13965BP

PATIENT
  Age: 67 Year
  Sex: Male
  Weight: 103.42 kg

DRUGS (8)
  1. PRADAXA [Suspect]
     Indication: ANTICOAGULANT THERAPY
     Dosage: 300 MG
     Route: 048
     Dates: start: 20110617, end: 20120728
  2. PRADAXA [Suspect]
     Indication: ATRIAL FIBRILLATION
  3. ALPRAZOLAM [Concomitant]
     Dosage: 1 MG
  4. BENAZEPRIL [Concomitant]
     Dosage: 40 MG
     Route: 048
  5. DILTIAZEM [Concomitant]
     Dosage: 360 MG
     Route: 048
  6. FUROSEMIDE [Concomitant]
     Dosage: 40 MG
     Route: 048
  7. POTASSIUM CHLORIDE [Concomitant]
     Dosage: 80 MEQ
  8. TRAMADOL [Concomitant]
     Dosage: 300 MG

REACTIONS (2)
  - Subdural haematoma [Unknown]
  - Haematuria [Recovered/Resolved]
